FAERS Safety Report 13858754 (Version 1)
Quarter: 2017Q3

REPORT INFORMATION
  Report Type: Spontaneous
  Country: US (occurrence: US)
  Receive Date: 20170811
  Receipt Date: 20170811
  Transmission Date: 20171127
  Serious: No
  Sender: FDA-Public Use
  Company Number: US-PERRIGO-16US020160

PATIENT
  Age: 49 Year
  Sex: Male
  Weight: 88.44 kg

DRUGS (11)
  1. TIZANIDINE. [Concomitant]
     Active Substance: TIZANIDINE
     Indication: MUSCLE SPASMS
  2. SINGULAIR [Concomitant]
     Active Substance: MONTELUKAST SODIUM
     Indication: PERENNIAL ALLERGY
     Dosage: UNK
     Route: 065
     Dates: start: 2011
  3. AMITRIPTYLINE [Concomitant]
     Active Substance: AMITRIPTYLINE
     Indication: INSOMNIA
  4. NEURONTIN [Concomitant]
     Active Substance: GABAPENTIN
     Indication: MUSCLE RELAXANT THERAPY
     Dosage: UNK
     Route: 065
     Dates: start: 2011
  5. TIZANIDINE. [Concomitant]
     Active Substance: TIZANIDINE
     Indication: MUSCLE RELAXANT THERAPY
     Dosage: 4 MG
     Route: 065
     Dates: start: 2011
  6. AMITRIPTYLINE [Concomitant]
     Active Substance: AMITRIPTYLINE
     Indication: NERVE INJURY
     Dosage: UNK, QHS
     Route: 065
     Dates: start: 2011
  7. NEURONTIN [Concomitant]
     Active Substance: GABAPENTIN
     Indication: MUSCLE SPASMS
  8. ZYRTEC [Concomitant]
     Active Substance: CETIRIZINE HYDROCHLORIDE
     Indication: PERENNIAL ALLERGY
     Dosage: UNK
     Route: 065
     Dates: start: 2011
  9. LORATADINE. [Suspect]
     Active Substance: LORATADINE
     Indication: PERENNIAL ALLERGY
     Dosage: 20 MG, QD, PRN
     Route: 048
     Dates: start: 20160820, end: 20160913
  10. OXYCODONE [Concomitant]
     Active Substance: OXYCODONE
     Indication: BACK PAIN
     Dosage: UNK
     Route: 065
     Dates: start: 2011
  11. OXYCODONE [Concomitant]
     Active Substance: OXYCODONE
     Indication: PAIN IN EXTREMITY

REACTIONS (3)
  - Expired product administered [Recovered/Resolved]
  - Drug screen positive [Recovered/Resolved]
  - Incorrect dose administered [Recovered/Resolved]

NARRATIVE: CASE EVENT DATE: 20160820
